FAERS Safety Report 5865818-7 (Version None)
Quarter: 2008Q3

REPORT INFORMATION
  Report Type: 
  Country: None (occurrence: None)
  Receive Date: 20080829
  Receipt Date: 20080821
  Transmission Date: 20090109
  Serious: Yes (Death, Disabling)
  Sender: FDA-Public Use
  Company Number: JP-SANOFI-SYNTHELABO-A01200703698

PATIENT
  Age: 67 Year
  Sex: Male
  Weight: 51 kg

DRUGS (23)
  1. MAGMITT [Concomitant]
     Indication: CONSTIPATION
     Route: 048
     Dates: start: 20061207
  2. SEROTONE [Concomitant]
     Indication: NAUSEA
     Route: 048
     Dates: start: 20061117, end: 20061201
  3. THEO-DUR [Concomitant]
     Indication: COUGH
     Route: 048
     Dates: start: 20061117
  4. HOKUNALIN: TAPE [Concomitant]
     Indication: COUGH
     Dates: start: 20061117
  5. CLEANAL [Concomitant]
     Indication: COUGH
     Route: 048
     Dates: start: 20061114
  6. CODEINE PHOSPHATE [Concomitant]
     Indication: COUGH
     Route: 048
     Dates: start: 20061113, end: 20061118
  7. NAUZELIN [Concomitant]
     Indication: NAUSEA
     Route: 048
     Dates: start: 20061109, end: 20061118
  8. AFTACH [Concomitant]
     Indication: STOMATITIS
     Dosage: UNK
     Dates: start: 20060220
  9. SELBEX [Concomitant]
     Indication: GASTRITIS PROPHYLAXIS
     Route: 048
     Dates: start: 20051227
  10. PURSENNID [Concomitant]
     Indication: CONSTIPATION
     Dosage: UNK
     Route: 048
     Dates: start: 20051227
  11. DASEN [Concomitant]
     Indication: COUGH
     Route: 048
     Dates: start: 20051222
  12. MUCOSOLVAN [Concomitant]
     Indication: COUGH
     Route: 048
     Dates: start: 20051222
  13. RESPLEN [Concomitant]
     Indication: COUGH
     Route: 048
     Dates: start: 20050704
  14. BROCIN CODEINE [Concomitant]
     Indication: COUGH
     Dosage: UNK
     Route: 048
     Dates: start: 20050704
  15. KYTRIL [Concomitant]
     Indication: PREMEDICATION
     Route: 042
     Dates: start: 20051226, end: 20070208
  16. DECADRON SRC [Concomitant]
     Indication: PREMEDICATION
     Route: 042
     Dates: start: 20051226, end: 20070208
  17. DECADRON SRC [Concomitant]
     Indication: MALAISE
     Route: 042
     Dates: start: 20051226, end: 20070208
  18. DECADRON SRC [Concomitant]
     Route: 048
     Dates: start: 20061114
  19. DECADRON SRC [Concomitant]
     Route: 048
     Dates: start: 20061114
  20. FLUOROURACIL [Suspect]
     Dosage: 600 MG/BODY=400 MG/M2 IN BOLUS THEN 900 MG/BODY=600 MG/M2 AS INFUSION
     Route: 040
     Dates: start: 20061207, end: 20061207
  21. FLUOROURACIL [Suspect]
     Route: 041
     Dates: start: 20061207, end: 20061208
  22. ISOVORIN [Suspect]
     Route: 041
     Dates: start: 20061207, end: 20061208
  23. ELPLAT [Suspect]
     Indication: RECTAL CANCER
     Route: 041
     Dates: start: 20061207, end: 20061207

REACTIONS (2)
  - INTERSTITIAL LUNG DISEASE [None]
  - NEUROPATHY PERIPHERAL [None]
